FAERS Safety Report 5215909-9 (Version None)
Quarter: 2007Q1

REPORT INFORMATION
  Report Type: 
  Country: None (occurrence: None)
  Receive Date: 20070123
  Receipt Date: 20070123
  Transmission Date: 20070707
  Serious: Yes (Other)
  Sender: FDA-Public Use
  Company Number: US-GLAXOSMITHKLINE-A0636430A

PATIENT
  Age: 52 Year
  Sex: Male

DRUGS (2)
  1. COMMIT [Suspect]
  2. CAPTOPRIL [Concomitant]

REACTIONS (7)
  - ARTHRALGIA [None]
  - DEPENDENCE [None]
  - DRUG ABUSER [None]
  - MICTURITION DISORDER [None]
  - OVERDOSE [None]
  - PAIN IN EXTREMITY [None]
  - RENAL PAIN [None]
